FAERS Safety Report 10162071 (Version 1)
Quarter: 2014Q2

REPORT INFORMATION
  Report Type: Spontaneous
  Country: US (occurrence: None)
  Receive Date: 20140508
  Receipt Date: 20140508
  Transmission Date: 20141212
  Serious: Yes (Hospitalization)
  Sender: FDA-Public Use
  Company Number: None

PATIENT
  Age: 58 Year
  Sex: Female
  Weight: 88 kg

DRUGS (2)
  1. CYCLOPHOSPHAMIDE [Suspect]
     Indication: CHEMOTHERAPY
  2. DOXORUBICIN HYDROCHLORIDE [Suspect]

REACTIONS (6)
  - Peripheral swelling [None]
  - Pyrexia [None]
  - Dyspnoea [None]
  - Febrile neutropenia [None]
  - Deep vein thrombosis [None]
  - Pulmonary embolism [None]
